FAERS Safety Report 21648301 (Version 1)
Quarter: 2022Q4

REPORT INFORMATION
  Report Type: Spontaneous
  Country: JP (occurrence: JP)
  Receive Date: 20221128
  Receipt Date: 20221128
  Transmission Date: 20230113
  Serious: Yes (Other)
  Sender: FDA-Public Use
  Company Number: JP-BRISTOL-MYERS SQUIBB COMPANY-2022-140827

PATIENT
  Age: 32 Year
  Sex: Male

DRUGS (2)
  1. IPILIMUMAB [Suspect]
     Active Substance: IPILIMUMAB
     Indication: Renal cell carcinoma recurrent
     Route: 041
  2. OPDIVO [Suspect]
     Active Substance: NIVOLUMAB
     Indication: Renal cell carcinoma recurrent
     Route: 041

REACTIONS (10)
  - Hepatic function abnormal [Unknown]
  - Diarrhoea [Recovering/Resolving]
  - Malaise [Unknown]
  - Vena cava embolism [Unknown]
  - Pulmonary embolism [Unknown]
  - Tubulointerstitial nephritis [Unknown]
  - Thyroiditis [Unknown]
  - Malignant neoplasm progression [Unknown]
  - Hepatic enzyme increased [Recovering/Resolving]
  - Metastases to liver [Unknown]
